FAERS Safety Report 25939964 (Version 1)
Quarter: 2025Q4

REPORT INFORMATION
  Report Type: Report from Study
  Country: US (occurrence: US)
  Receive Date: 20251020
  Receipt Date: 20251020
  Transmission Date: 20260118
  Serious: Yes (Other)
  Sender: ACADIA PHARMACEUTICALS
  Company Number: US-ACADIA PHARMACEUTICALS INC.-ACA-2025-PIM-011295

PATIENT
  Age: 79 Year
  Sex: Female

DRUGS (10)
  1. NUPLAZID [Suspect]
     Active Substance: PIMAVANSERIN TARTRATE
     Indication: Parkinson^s disease
     Dosage: 34 MILLIGRAM, QD
     Route: 048
     Dates: start: 20241015
  2. ATORVASTATIN [Concomitant]
     Active Substance: ATORVASTATIN
  3. CARBIDOPA\LEVODOPA [Concomitant]
     Active Substance: CARBIDOPA\LEVODOPA
  4. CITALOPRAM [Concomitant]
     Active Substance: CITALOPRAM
  5. COENZYME Q10 [Concomitant]
     Active Substance: DIETARY SUPPLEMENT\UBIDECARENONE
  6. LISINOPRIL [Concomitant]
     Active Substance: LISINOPRIL
  7. MULTI [Concomitant]
  8. MINERALS\VITAMINS [Concomitant]
     Active Substance: MINERALS\VITAMINS
  9. RIVASTIGMINE [Concomitant]
     Active Substance: RIVASTIGMINE
  10. VITAMIN D3 [Concomitant]
     Active Substance: CHOLECALCIFEROL
     Dosage: 10000 UNITS

REACTIONS (4)
  - Hallucination [Not Recovered/Not Resolved]
  - Obsessive-compulsive disorder [Not Recovered/Not Resolved]
  - Sleep disorder [Not Recovered/Not Resolved]
  - Confusional state [Not Recovered/Not Resolved]

NARRATIVE: CASE EVENT DATE: 20250714
